FAERS Safety Report 12269436 (Version 1)
Quarter: 2016Q2

REPORT INFORMATION
  Report Type: Other
  Country: FR (occurrence: FR)
  Receive Date: 20160414
  Receipt Date: 20160414
  Transmission Date: 20160815
  Serious: Yes (Hospitalization)
  Sender: FDA-Public Use
  Company Number: FR-SYMPLMED PHARMACEUTICALS-2016SYMPLMED000186

PATIENT

DRUGS (6)
  1. NUTRIVISC [Concomitant]
     Indication: PRODUCT USED FOR UNKNOWN INDICATION
     Dosage: UNK
     Route: 047
  2. COMBIGAN [Concomitant]
     Active Substance: BRIMONIDINE TARTRATE\TIMOLOL MALEATE
     Indication: PRODUCT USED FOR UNKNOWN INDICATION
     Dosage: UNK
     Route: 047
  3. PRAVASTATIN SODIUM. [Concomitant]
     Active Substance: PRAVASTATIN SODIUM
     Indication: PRODUCT USED FOR UNKNOWN INDICATION
     Dosage: 40 MG, QD
     Dates: start: 2010
  4. COVERSYL [Suspect]
     Active Substance: PERINDOPRIL
     Indication: CORONARY ARTERY DISEASE
     Dosage: 10 MG, QD
     Route: 048
     Dates: start: 2010, end: 20160321
  5. KARDEGIC [Concomitant]
     Active Substance: ASPIRIN LYSINE
     Indication: PRODUCT USED FOR UNKNOWN INDICATION
     Dosage: 75 MG, QD
     Dates: start: 2010
  6. AVODART [Concomitant]
     Active Substance: DUTASTERIDE
     Indication: PRODUCT USED FOR UNKNOWN INDICATION
     Dosage: 0.5 MG, UNK

REACTIONS (4)
  - Angioedema [Recovered/Resolved]
  - Chest pain [Unknown]
  - Hypertension [Unknown]
  - Bundle branch block [Unknown]

NARRATIVE: CASE EVENT DATE: 201603
